FAERS Safety Report 23965606 (Version 1)
Quarter: 2024Q2

REPORT INFORMATION
  Report Type: Report from Study
  Country: US (occurrence: US)
  Receive Date: 20240612
  Receipt Date: 20240612
  Transmission Date: 20240716
  Serious: Yes (Other)
  Sender: FDA-Public Use
  Company Number: US-TAKEDA-2024TUS030573

PATIENT
  Age: 61 Year
  Sex: Female

DRUGS (64)
  1. VEDOLIZUMAB [Suspect]
     Active Substance: VEDOLIZUMAB
     Indication: Colitis ulcerative
     Dosage: 108 MILLIGRAM, Q2WEEKS
     Route: 058
     Dates: start: 20240323
  2. VEDOLIZUMAB [Suspect]
     Active Substance: VEDOLIZUMAB
     Indication: Colitis ulcerative
     Dosage: 108 MILLIGRAM, Q2WEEKS
     Route: 058
     Dates: start: 20240323
  3. VEDOLIZUMAB [Suspect]
     Active Substance: VEDOLIZUMAB
     Indication: Colitis ulcerative
     Dosage: 108 MILLIGRAM, Q2WEEKS
     Route: 058
     Dates: start: 20240323
  4. VEDOLIZUMAB [Suspect]
     Active Substance: VEDOLIZUMAB
     Indication: Colitis ulcerative
     Dosage: 108 MILLIGRAM, Q2WEEKS
     Route: 058
     Dates: start: 20240323
  5. VEDOLIZUMAB [Suspect]
     Active Substance: VEDOLIZUMAB
     Indication: Pruritus
  6. VEDOLIZUMAB [Suspect]
     Active Substance: VEDOLIZUMAB
     Indication: Pruritus
  7. VEDOLIZUMAB [Suspect]
     Active Substance: VEDOLIZUMAB
     Indication: Pruritus
  8. VEDOLIZUMAB [Suspect]
     Active Substance: VEDOLIZUMAB
     Indication: Pruritus
  9. VEDOLIZUMAB [Suspect]
     Active Substance: VEDOLIZUMAB
     Indication: Lumbar radiculopathy
  10. VEDOLIZUMAB [Suspect]
     Active Substance: VEDOLIZUMAB
     Indication: Lumbar radiculopathy
  11. VEDOLIZUMAB [Suspect]
     Active Substance: VEDOLIZUMAB
     Indication: Lumbar radiculopathy
  12. VEDOLIZUMAB [Suspect]
     Active Substance: VEDOLIZUMAB
     Indication: Lumbar radiculopathy
  13. VEDOLIZUMAB [Suspect]
     Active Substance: VEDOLIZUMAB
     Indication: Bone density abnormal
  14. VEDOLIZUMAB [Suspect]
     Active Substance: VEDOLIZUMAB
     Indication: Bone density abnormal
  15. VEDOLIZUMAB [Suspect]
     Active Substance: VEDOLIZUMAB
     Indication: Bone density abnormal
  16. VEDOLIZUMAB [Suspect]
     Active Substance: VEDOLIZUMAB
     Indication: Bone density abnormal
  17. VEDOLIZUMAB [Suspect]
     Active Substance: VEDOLIZUMAB
     Indication: Drug therapy
  18. VEDOLIZUMAB [Suspect]
     Active Substance: VEDOLIZUMAB
     Indication: Drug therapy
  19. VEDOLIZUMAB [Suspect]
     Active Substance: VEDOLIZUMAB
     Indication: Drug therapy
  20. VEDOLIZUMAB [Suspect]
     Active Substance: VEDOLIZUMAB
     Indication: Drug therapy
  21. VEDOLIZUMAB [Suspect]
     Active Substance: VEDOLIZUMAB
     Indication: Liver function test abnormal
  22. VEDOLIZUMAB [Suspect]
     Active Substance: VEDOLIZUMAB
     Indication: Liver function test abnormal
  23. VEDOLIZUMAB [Suspect]
     Active Substance: VEDOLIZUMAB
     Indication: Liver function test abnormal
  24. VEDOLIZUMAB [Suspect]
     Active Substance: VEDOLIZUMAB
     Indication: Liver function test abnormal
  25. VEDOLIZUMAB [Suspect]
     Active Substance: VEDOLIZUMAB
     Indication: Eosinophilia
  26. VEDOLIZUMAB [Suspect]
     Active Substance: VEDOLIZUMAB
     Indication: Eosinophilia
  27. VEDOLIZUMAB [Suspect]
     Active Substance: VEDOLIZUMAB
     Indication: Eosinophilia
  28. VEDOLIZUMAB [Suspect]
     Active Substance: VEDOLIZUMAB
     Indication: Eosinophilia
  29. VEDOLIZUMAB [Suspect]
     Active Substance: VEDOLIZUMAB
     Indication: Vitamin D deficiency
  30. VEDOLIZUMAB [Suspect]
     Active Substance: VEDOLIZUMAB
     Indication: Vitamin D deficiency
  31. VEDOLIZUMAB [Suspect]
     Active Substance: VEDOLIZUMAB
     Indication: Vitamin D deficiency
  32. VEDOLIZUMAB [Suspect]
     Active Substance: VEDOLIZUMAB
     Indication: Vitamin D deficiency
  33. VEDOLIZUMAB [Suspect]
     Active Substance: VEDOLIZUMAB
     Indication: Obesity
  34. VEDOLIZUMAB [Suspect]
     Active Substance: VEDOLIZUMAB
     Indication: Obesity
  35. VEDOLIZUMAB [Suspect]
     Active Substance: VEDOLIZUMAB
     Indication: Obesity
  36. VEDOLIZUMAB [Suspect]
     Active Substance: VEDOLIZUMAB
     Indication: Obesity
  37. VEDOLIZUMAB [Suspect]
     Active Substance: VEDOLIZUMAB
     Indication: Hyperlipidaemia
  38. VEDOLIZUMAB [Suspect]
     Active Substance: VEDOLIZUMAB
     Indication: Hyperlipidaemia
  39. VEDOLIZUMAB [Suspect]
     Active Substance: VEDOLIZUMAB
     Indication: Hyperlipidaemia
  40. VEDOLIZUMAB [Suspect]
     Active Substance: VEDOLIZUMAB
     Indication: Hyperlipidaemia
  41. VEDOLIZUMAB [Suspect]
     Active Substance: VEDOLIZUMAB
     Indication: Obsessive-compulsive disorder
  42. VEDOLIZUMAB [Suspect]
     Active Substance: VEDOLIZUMAB
     Indication: Obsessive-compulsive disorder
  43. VEDOLIZUMAB [Suspect]
     Active Substance: VEDOLIZUMAB
     Indication: Obsessive-compulsive disorder
  44. VEDOLIZUMAB [Suspect]
     Active Substance: VEDOLIZUMAB
     Indication: Obsessive-compulsive disorder
  45. VEDOLIZUMAB [Suspect]
     Active Substance: VEDOLIZUMAB
     Indication: Migraine
  46. VEDOLIZUMAB [Suspect]
     Active Substance: VEDOLIZUMAB
     Indication: Migraine
  47. VEDOLIZUMAB [Suspect]
     Active Substance: VEDOLIZUMAB
     Indication: Migraine
  48. VEDOLIZUMAB [Suspect]
     Active Substance: VEDOLIZUMAB
     Indication: Migraine
  49. VEDOLIZUMAB [Suspect]
     Active Substance: VEDOLIZUMAB
     Indication: Iridocyclitis
  50. VEDOLIZUMAB [Suspect]
     Active Substance: VEDOLIZUMAB
     Indication: Iridocyclitis
  51. VEDOLIZUMAB [Suspect]
     Active Substance: VEDOLIZUMAB
     Indication: Iridocyclitis
  52. VEDOLIZUMAB [Suspect]
     Active Substance: VEDOLIZUMAB
     Indication: Iridocyclitis
  53. CALCIUM [Concomitant]
     Active Substance: CALCIUM
     Dosage: 600 MILLIGRAM
  54. VITAMIN D3 [Concomitant]
     Active Substance: CHOLECALCIFEROL
     Dosage: 50 MICROGRAM
  55. VITAMIN B12 [Concomitant]
     Active Substance: CYANOCOBALAMIN
     Dosage: 1000 MICROGRAM
  56. TUMS [Concomitant]
     Active Substance: CALCIUM CARBONATE
     Dosage: 500 MILLIGRAM
     Route: 048
  57. TYLENOL [Concomitant]
     Active Substance: ACETAMINOPHEN
     Dosage: 325 MILLIGRAM
  58. RIBOFLAVIN [Concomitant]
     Active Substance: RIBOFLAVIN
     Dosage: 400 MILLIGRAM
  59. ZOLOFT [Concomitant]
     Active Substance: SERTRALINE HYDROCHLORIDE
     Dosage: 100 MILLIGRAM
  60. TOPIRAMATE [Concomitant]
     Active Substance: TOPIRAMATE
     Dosage: 25 MILLIGRAM
  61. SUMATRIPTAN SUCCINATE [Concomitant]
     Active Substance: SUMATRIPTAN SUCCINATE
     Dosage: 100 MILLIGRAM
  62. IBUPROFEN [Concomitant]
     Active Substance: IBUPROFEN
     Dosage: 200 MILLIGRAM
  63. PREGABALIN [Concomitant]
     Active Substance: PREGABALIN
     Dosage: 75 MILLIGRAM
  64. BIOTIN [Concomitant]
     Active Substance: BIOTIN
     Dosage: 10 MILLIGRAM

REACTIONS (3)
  - Colitis ulcerative [Unknown]
  - Injection site pain [Recovered/Resolved]
  - Product use in unapproved indication [Unknown]

NARRATIVE: CASE EVENT DATE: 20240326
